FAERS Safety Report 9823293 (Version 1)
Quarter: 2014Q1

REPORT INFORMATION
  Report Type: Spontaneous
  Country: US (occurrence: US)
  Receive Date: 20140116
  Receipt Date: 20140116
  Transmission Date: 20141002
  Serious: Yes (Other)
  Sender: FDA-Public Use
  Company Number: US-ABBVIE-14P-163-1187787-00

PATIENT
  Sex: Female
  Weight: 59.02 kg

DRUGS (3)
  1. SYNTHROID [Suspect]
     Indication: PRODUCT USED FOR UNKNOWN INDICATION
     Route: 048
  2. CIPRO [Suspect]
     Indication: URINARY TRACT INFECTION
     Dates: start: 201310, end: 201310
  3. PROTOSEL-OTC SUPPLEMENT [Concomitant]
     Indication: PRODUCT USED FOR UNKNOWN INDICATION

REACTIONS (5)
  - Uterine cancer [Recovered/Resolved]
  - Urticaria [Not Recovered/Not Resolved]
  - Urticaria [Not Recovered/Not Resolved]
  - Urinary tract infection [Recovered/Resolved]
  - Pruritus [Not Recovered/Not Resolved]
